FAERS Safety Report 9180907 (Version 2)
Quarter: 2013Q2

REPORT INFORMATION
  Report Type: Report from Study
  Country: BR (occurrence: BR)
  Receive Date: 20130322
  Receipt Date: 20130528
  Transmission Date: 20140414
  Serious: Yes (Hospitalization, Other)
  Sender: FDA-Public Use
  Company Number: PHHY2013BR027826

PATIENT
  Sex: Female
  Weight: 69 kg

DRUGS (3)
  1. ACLASTA [Suspect]
     Indication: OSTEOPOROSIS
     Dosage: 5 MG, YEARLY
     Route: 042
     Dates: start: 201112
  2. ENALAPRIL [Concomitant]
     Indication: HYPERTENSION
     Dosage: 2 DF, UNK
     Route: 048
  3. CALCIUM CITRATE MALATE WITH D3 [Concomitant]
     Indication: OSTEOPOROSIS
     Dosage: 2 DF, 250MG/2.5UG
     Route: 048

REACTIONS (6)
  - Accident [Recovering/Resolving]
  - Spinal fracture [Recovering/Resolving]
  - Lumbar vertebral fracture [Recovered/Resolved]
  - Fracture pain [Not Recovered/Not Resolved]
  - Vitamin D deficiency [Not Recovered/Not Resolved]
  - Bone erosion [Not Recovered/Not Resolved]
